FAERS Safety Report 10975597 (Version 1)
Quarter: 2015Q2

REPORT INFORMATION
  Report Type: Spontaneous
  Country: IE (occurrence: IE)
  Receive Date: 20150401
  Receipt Date: 20150401
  Transmission Date: 20150821
  Serious: Yes (Hospitalization)
  Sender: FDA-Public Use
  Company Number: IE-BAYER-2015-091239

PATIENT
  Age: 20 Year
  Sex: Female

DRUGS (1)
  1. YASMIN [Suspect]
     Active Substance: DROSPIRENONE\ETHINYL ESTRADIOL

REACTIONS (12)
  - Cardiac disorder [None]
  - Memory impairment [None]
  - Pain [None]
  - Disturbance in attention [None]
  - Depression [None]
  - Confusional state [None]
  - Anxiety [None]
  - Psychiatric symptom [None]
  - Lung disorder [None]
  - Pulmonary embolism [None]
  - Irritability [None]
  - Panic attack [None]

NARRATIVE: CASE EVENT DATE: 2013
